FAERS Safety Report 8580141-8 (Version None)
Quarter: 2012Q3

REPORT INFORMATION
  Report Type: 
  Country: None (occurrence: None)
  Receive Date: 20120808
  Receipt Date: 20120806
  Transmission Date: 20120928
  Serious: Yes (Other)
  Sender: FDA-Public Use
  Company Number: US-PFIZER INC-2012174202

PATIENT
  Age: 55 Year
  Sex: Female
  Weight: 67 kg

DRUGS (4)
  1. LYRICA [Suspect]
     Dosage: 100 MG, ONCE A DAY OR TWO TIMES A DAY
     Route: 048
     Dates: start: 20100101
  2. NORCO [Concomitant]
     Indication: MIGRAINE
     Dosage: UNK
  3. LYRICA [Suspect]
     Indication: NERVE INJURY
     Dosage: 100 MG, 3X/DAY
     Route: 048
     Dates: start: 20070101, end: 20100101
  4. BENADRYL [Concomitant]
     Indication: HYPERSENSITIVITY
     Dosage: UNK

REACTIONS (4)
  - THERAPEUTIC RESPONSE UNEXPECTED [None]
  - CROHN'S DISEASE [None]
  - BLOOD POTASSIUM DECREASED [None]
  - BLOOD CALCIUM DECREASED [None]
